FAERS Safety Report 5598890-2 (Version None)
Quarter: 2008Q1

REPORT INFORMATION
  Report Type: 
  Country: None (occurrence: None)
  Receive Date: 20080122
  Receipt Date: 20080117
  Transmission Date: 20080703
  Serious: Yes (Other)
  Sender: FDA-Public Use
  Company Number: GB-RANBAXY-2008RR-12651

PATIENT

DRUGS (4)
  1. FLUOXETINE 20MG CAPSULES [Suspect]
     Indication: DEPRESSION
     Dosage: 20 MG, UNK
     Route: 048
     Dates: start: 20071210, end: 20080107
  2. FLUOXETINE 20MG CAPSULES [Concomitant]
     Dosage: 10 MG, UNK
     Route: 048
     Dates: start: 20071120, end: 20071210
  3. LEVOTHYROXINE SODIUM [Concomitant]
     Indication: HYPOTHYROIDISM
     Dosage: 50 UG, UNK
     Route: 048
     Dates: start: 20050201
  4. ZOPICLONE [Concomitant]
     Indication: INSOMNIA
     Dosage: 3.75 MG, QD
     Route: 048
     Dates: start: 20071015, end: 20071113

REACTIONS (2)
  - PARKINSON'S DISEASE [None]
  - TARDIVE DYSKINESIA [None]
